FAERS Safety Report 9894521 (Version 1)
Quarter: 2014Q1

REPORT INFORMATION
  Report Type: Spontaneous
  Country: CA (occurrence: CA)
  Receive Date: 20140213
  Receipt Date: 20140213
  Transmission Date: 20141002
  Serious: Yes (Other)
  Sender: FDA-Public Use
  Company Number: CA-B.I. PHARMACEUTICALS,INC./RIDGEFIELD-2014-BI-05434CN

PATIENT
  Age: 71 Year
  Sex: Female
  Weight: 63.5 kg

DRUGS (5)
  1. PRADAXA [Suspect]
     Indication: PRODUCT USED FOR UNKNOWN INDICATION
     Dosage: 2 ANZ
     Route: 048
  2. CELEBREX [Suspect]
     Indication: PRODUCT USED FOR UNKNOWN INDICATION
     Dosage: 200 MG
     Route: 048
  3. ARIMIDEX [Concomitant]
  4. CRESTOR [Concomitant]
  5. SYNTHROID [Concomitant]

REACTIONS (9)
  - Haemorrhage [Recovered/Resolved]
  - Gastrointestinal haemorrhage [Recovered/Resolved]
  - Aphagia [Recovered/Resolved]
  - Asthenia [Recovered/Resolved]
  - Fatigue [Recovered/Resolved]
  - Knee arthroplasty [Recovered/Resolved]
  - Nausea [Recovered/Resolved]
  - Faeces discoloured [Recovered/Resolved]
  - Weight decreased [Recovered/Resolved]
